FAERS Safety Report 5104562-0 (Version None)
Quarter: 2006Q3

REPORT INFORMATION
  Report Type: 
  Country: None (occurrence: None)
  Receive Date: 20060911
  Receipt Date: 20060830
  Transmission Date: 20061208
  Serious: Yes (Death)
  Sender: FDA-Public Use
  Company Number: JP200607005174

PATIENT
  Age: 55 Year
  Sex: Female

DRUGS (4)
  1. ZYPREXA [Suspect]
     Indication: ACUTE PSYCHOSIS
     Dosage: 20 MG, DAILY (1/D), ORAL
     Route: 048
     Dates: start: 20060706, end: 20060710
  2. BIPERIDEN (BIPERIDEN) [Concomitant]
  3. FLUNITRAZEPAM (FLUNITRAZEPAM) [Concomitant]
  4. NIFEDIPINE [Concomitant]

REACTIONS (4)
  - BLOOD GLUCOSE INCREASED [None]
  - GENERAL PHYSICAL CONDITION ABNORMAL [None]
  - GLUCOSE URINE PRESENT [None]
  - PULMONARY THROMBOSIS [None]
